FAERS Safety Report 18750318 (Version 1)
Quarter: 2021Q1

REPORT INFORMATION
  Report Type: Spontaneous
  Country: NL (occurrence: NL)
  Receive Date: 20210118
  Receipt Date: 20210118
  Transmission Date: 20210419
  Serious: Yes (Other)
  Sender: FDA-Public Use
  Company Number: NL-AUROBINDO-AUR-APL-2021-000942

PATIENT
  Sex: Male
  Weight: 74 kg

DRUGS (11)
  1. DUODOPA [Suspect]
     Active Substance: CARBIDOPA\LEVODOPA
     Dosage: UNK (MD: 5.7, CD: 4.3, ED: 2.9, ND: 3.4 )
     Route: 050
  2. CLOZAPINE. [Suspect]
     Active Substance: CLOZAPINE
     Indication: PRODUCT USED FOR UNKNOWN INDICATION
     Dosage: UNK
     Route: 065
  3. DUODOPA [Suspect]
     Active Substance: CARBIDOPA\LEVODOPA
     Dosage: UNK (MD: 5.7ML, CD: 4.5ML/H, ED: 3.6ML, CND: 3.5ML/H. )
     Route: 050
  4. DUODOPA [Suspect]
     Active Substance: CARBIDOPA\LEVODOPA
     Indication: PARKINSON^S DISEASE
     Dosage: UNK(MD: 5.7ML, CD: 4.5ML/H, ED: 3.6ML)
     Route: 050
  5. DUODOPA [Suspect]
     Active Substance: CARBIDOPA\LEVODOPA
     Dosage: UNK (MD: 5.7ML, CD: 4.5ML/H, ED: 2.9ML. )
     Route: 050
  6. DUODOPA [Suspect]
     Active Substance: CARBIDOPA\LEVODOPA
     Dosage: UNK (MD: 5.7, CD: 4.5, ED: 3.7, CND: 3.5 )
     Route: 050
  7. DUODOPA [Suspect]
     Active Substance: CARBIDOPA\LEVODOPA
     Dosage: UNK (MD: 5.7, CD: 4.6, ED: 2.9, ND: 3.4 REMAINS AT 16 HOURS)
     Route: 050
  8. EXELON [Concomitant]
     Active Substance: RIVASTIGMINE TARTRATE
     Indication: PRODUCT USED FOR UNKNOWN INDICATION
     Route: 065
  9. CLOZAPINE. [Suspect]
     Active Substance: CLOZAPINE
     Dosage: UNK (DOSE INCREASED )
     Route: 065
  10. CLOZAPINE. [Suspect]
     Active Substance: CLOZAPINE
     Dosage: UNK (DOSAGE DECREASED TO OLD DOSAGE )
     Route: 065
  11. DUODOPA [Suspect]
     Active Substance: CARBIDOPA\LEVODOPA
     Dosage: UNK (MD: 5.7, CD: 4.5, ED:3.5, ND: 3.7)
     Route: 050

REACTIONS (54)
  - Fluid intake reduced [Recovered/Resolved]
  - Device issue [Unknown]
  - Therapeutic product effect incomplete [Not Recovered/Not Resolved]
  - Incoherent [Not Recovered/Not Resolved]
  - Accidental underdose [Recovered/Resolved]
  - Dementia [Not Recovered/Not Resolved]
  - Muscle rigidity [Not Recovered/Not Resolved]
  - Malaise [Not Recovered/Not Resolved]
  - Confusional state [Not Recovered/Not Resolved]
  - Hallucination [Recovering/Resolving]
  - Bradykinesia [Not Recovered/Not Resolved]
  - Prostatic disorder [Not Recovered/Not Resolved]
  - Musculoskeletal stiffness [Not Recovered/Not Resolved]
  - Unevaluable event [Unknown]
  - Drooling [Unknown]
  - Cystitis [Unknown]
  - Dizziness [Not Recovered/Not Resolved]
  - Weight fluctuation [Recovered/Resolved]
  - Therapeutic product effect decreased [Not Recovered/Not Resolved]
  - Salivary hypersecretion [Not Recovered/Not Resolved]
  - Medical device pain [Not Recovered/Not Resolved]
  - Decreased appetite [Recovered/Resolved]
  - Device difficult to use [Recovered/Resolved]
  - Enema administration [Unknown]
  - Dyskinesia [Recovered/Resolved]
  - Tremor [Not Recovered/Not Resolved]
  - Stoma site pain [Not Recovered/Not Resolved]
  - Dysstasia [Not Recovered/Not Resolved]
  - Impaired quality of life [Unknown]
  - Mobility decreased [Not Recovered/Not Resolved]
  - Insomnia [Not Recovered/Not Resolved]
  - Cognitive disorder [Not Recovered/Not Resolved]
  - Incontinence [Not Recovered/Not Resolved]
  - Hypophagia [Not Recovered/Not Resolved]
  - Nausea [Recovered/Resolved]
  - Somnolence [Not Recovered/Not Resolved]
  - Paraesthesia [Recovering/Resolving]
  - Infrequent bowel movements [Recovered/Resolved]
  - Weight decreased [Recovered/Resolved]
  - Abnormal faeces [Not Recovered/Not Resolved]
  - Loss of personal independence in daily activities [Not Recovered/Not Resolved]
  - Hemianaesthesia [Recovering/Resolving]
  - Sleep talking [Not Recovered/Not Resolved]
  - Stoma site oedema [Not Recovered/Not Resolved]
  - Anger [Not Recovered/Not Resolved]
  - Stoma site discharge [Unknown]
  - Memory impairment [Not Recovered/Not Resolved]
  - Stoma site odour [Not Recovered/Not Resolved]
  - Anxiety [Not Recovered/Not Resolved]
  - Asthenia [Not Recovered/Not Resolved]
  - Social avoidant behaviour [Not Recovered/Not Resolved]
  - On and off phenomenon [Not Recovered/Not Resolved]
  - Urinary tract infection [Not Recovered/Not Resolved]
  - Boredom [Not Recovered/Not Resolved]

NARRATIVE: CASE EVENT DATE: 20170304
